FAERS Safety Report 22204963 (Version 1)
Quarter: 2023Q2

REPORT INFORMATION
  Report Type: Spontaneous
  Country: US (occurrence: US)
  Receive Date: 20230413
  Receipt Date: 20230413
  Transmission Date: 20230722
  Serious: Yes (Life-Threatening, Hospitalization)
  Sender: FDA-Public Use
  Company Number: US-MACLEODS PHARMACEUTICALS US LTD-MAC2023040684

PATIENT

DRUGS (5)
  1. LIDOCAINE [Suspect]
     Active Substance: LIDOCAINE
     Indication: Product used for unknown indication
     Dosage: 6 MILLILITER
     Route: 065
  2. ACETAMINOPHEN [Suspect]
     Active Substance: ACETAMINOPHEN
     Indication: Product used for unknown indication
     Dosage: UNK (ACETAMINOPHEN)_
     Route: 065
  3. VITAMINS [Suspect]
     Active Substance: VITAMINS
     Indication: Product used for unknown indication
     Dosage: UNK
     Route: 065
  4. IRON [Suspect]
     Active Substance: IRON
     Indication: Product used for unknown indication
     Dosage: UNK
     Route: 065
  5. NISENTIL [Suspect]
     Active Substance: ALPHAPRODINE HYDROCHLORIDE
     Indication: Product used for unknown indication
     Dosage: 20 MILLIGRAM (1 AND HALF HOURS PRIOR TO DELIVERY)
     Route: 065

REACTIONS (10)
  - Seizure [Recovered/Resolved]
  - Apnoea [Unknown]
  - Hypotonia [Unknown]
  - Sinus arrhythmia [Unknown]
  - Mydriasis [Unknown]
  - Oculocephalogyric reflex absent [Unknown]
  - Caput succedaneum [Unknown]
  - Hyperreflexia [Unknown]
  - Toxicity to various agents [Unknown]
  - Foetal exposure during pregnancy [Unknown]
